FAERS Safety Report 5388371-3 (Version None)
Quarter: 2007Q3

REPORT INFORMATION
  Report Type: 
  Country: None (occurrence: None)
  Receive Date: 20070711
  Receipt Date: 20070629
  Transmission Date: 20080115
  Serious: Yes (Life-Threatening, Hospitalization, Disabling, Other)
  Sender: FDA-Public Use
  Company Number: 07072169

PATIENT
  Age: 84 Year
  Sex: Male

DRUGS (6)
  1. CIPROFLOXACIN HCL [Suspect]
     Indication: INFECTION
     Dosage: 500MG, BID, ORAL
     Route: 048
  2. ASPIRIN [Concomitant]
  3. FRUSEMIDE (FRUSEMIDE) [Concomitant]
  4. ALLOPURINOL [Concomitant]
  5. CARVEDILOL [Concomitant]
  6. IRBESARTAN [Concomitant]

REACTIONS (7)
  - CEREBRAL ATROPHY [None]
  - DYSARTHRIA [None]
  - DYSKINESIA [None]
  - INCORRECT DOSE ADMINISTERED [None]
  - LACUNAR INFARCTION [None]
  - RENAL IMPAIRMENT [None]
  - TREMOR [None]
